FAERS Safety Report 8614823-6 (Version None)
Quarter: 2012Q3

REPORT INFORMATION
  Report Type: 
  Country: None (occurrence: None)
  Receive Date: 20120823
  Receipt Date: 20120816
  Transmission Date: 20120928
  Serious: Yes (Other)
  Sender: FDA-Public Use
  Company Number: AU-SANOFI-AVENTIS-2012SA058570

PATIENT
  Age: 80 Year
  Sex: Female

DRUGS (5)
  1. FLUCLOXACILLIN [Concomitant]
  2. ATENOLOL [Concomitant]
  3. SEREPAX [Concomitant]
  4. PLAQUENIL [Suspect]
     Route: 065
  5. LEXAPRO [Concomitant]

REACTIONS (2)
  - DRUG INEFFECTIVE [None]
  - INFECTION [None]
